FAERS Safety Report 8510974-5 (Version None)
Quarter: 2012Q3

REPORT INFORMATION
  Report Type: 
  Country: None (occurrence: None)
  Receive Date: 20120703
  Receipt Date: 20120625
  Transmission Date: 20120928
  Serious: No
  Sender: FDA-Public Use
  Company Number: 2012MA007846

PATIENT
  Age: 78 Year
  Sex: Male

DRUGS (2)
  1. LEVODOPA [Concomitant]
  2. CARBIDOPA AND LEVODOPA [Suspect]
     Indication: PARKINSON'S DISEASE
     Dosage: GT

REACTIONS (3)
  - DEVICE OCCLUSION [None]
  - DEVICE MALFUNCTION [None]
  - FEEDING TUBE COMPLICATION [None]
